FAERS Safety Report 15091679 (Version 1)
Quarter: 2018Q2

REPORT INFORMATION
  Report Type: Report from Study
  Country: US (occurrence: US)
  Receive Date: 20180629
  Receipt Date: 20180629
  Transmission Date: 20180711
  Serious: No
  Sender: FDA-Public Use
  Company Number: US-AMGEN-USASP2011025137

PATIENT
  Age: 71 Year
  Sex: Female

DRUGS (7)
  1. FLAXSEED [Concomitant]
     Active Substance: FLAX SEED
  2. AZATHIOPRINE. [Concomitant]
     Active Substance: AZATHIOPRINE
  3. PROLIA [Suspect]
     Active Substance: DENOSUMAB
     Indication: OSTEOPOROSIS POSTMENOPAUSAL
     Dosage: 60 MG, Q6MO
  4. ACIDOPHILUS [Concomitant]
     Active Substance: LACTOBACILLUS ACIDOPHILUS
  5. CALCIUM [Concomitant]
     Active Substance: CALCIUM
  6. BALSALAZIDE [Concomitant]
     Active Substance: BALSALAZIDE
  7. LASIX [Concomitant]
     Active Substance: FUROSEMIDE

REACTIONS (8)
  - Pain [Unknown]
  - Tooth disorder [Recovered/Resolved]
  - Pollakiuria [Unknown]
  - Gingival pain [Recovered/Resolved]
  - Bladder disorder [Unknown]
  - Fall [Unknown]
  - Memory impairment [Unknown]
  - Toothache [Recovered/Resolved]

NARRATIVE: CASE EVENT DATE: 201104
